FAERS Safety Report 7006605-6 (Version None)
Quarter: 2010Q3

REPORT INFORMATION
  Report Type: 
  Country: None (occurrence: None)
  Receive Date: 20100921
  Receipt Date: 20100921
  Transmission Date: 20110219
  Serious: Yes (Hospitalization)
  Sender: FDA-Public Use
  Company Number: None

PATIENT
  Sex: Male
  Weight: 79.8 kg

DRUGS (3)
  1. METHOTREXATE [Suspect]
     Dosage: 915 MG
  2. PEG-L- ASPARAGINASE (K -H) [Suspect]
     Dosage: 10000 MG
  3. VINCRISTINE SULFATE [Suspect]
     Dosage: 3 MG

REACTIONS (13)
  - ASTHENIA [None]
  - ERYTHEMA [None]
  - FEBRILE NEUTROPENIA [None]
  - HAEMORRHOIDS [None]
  - JAUNDICE [None]
  - MUCOSAL INFLAMMATION [None]
  - ORAL PAIN [None]
  - OROPHARYNGEAL PAIN [None]
  - PYREXIA [None]
  - RASH [None]
  - SCROTAL PAIN [None]
  - SINUS TACHYCARDIA [None]
  - SWELLING [None]
